FAERS Safety Report 9037088 (Version 3)
Quarter: 2013Q2

REPORT INFORMATION
  Report Type: Spontaneous
  Country: US (occurrence: US)
  Receive Date: 20130129
  Receipt Date: 20130412
  Transmission Date: 20140414
  Serious: No
  Sender: FDA-Public Use
  Company Number: US-009507513-1301USA008964

PATIENT
  Age: 29 Year
  Sex: Female
  Weight: 105.21 kg

DRUGS (4)
  1. IMPLANON [Suspect]
     Indication: CONTRACEPTION
     Dosage: EVERY 3 YEARS
     Route: 059
     Dates: start: 20080727, end: 201201
  2. FLUTICASONE [Concomitant]
     Dosage: UNK, FORMULATION INHALER
     Route: 055
  3. ABILIFY [Concomitant]
     Dosage: UNK
  4. LITHIUM [Concomitant]
     Dosage: UNK

REACTIONS (4)
  - Incorrect drug administration duration [Unknown]
  - Device difficult to use [Unknown]
  - Medical device complication [Unknown]
  - Device dislocation [Unknown]
